FAERS Safety Report 12240869 (Version 2)
Quarter: 2016Q2

REPORT INFORMATION
  Report Type: Spontaneous
  Country: US (occurrence: US)
  Receive Date: 20160406
  Receipt Date: 20160530
  Transmission Date: 20160815
  Serious: No
  Sender: FDA-Public Use
  Company Number: US-ASTRAZENECA-2016SE21012

PATIENT
  Sex: Female

DRUGS (3)
  1. RHINOCORT [Suspect]
     Active Substance: BUDESONIDE
     Indication: NASAL CONGESTION
     Dosage: 2 SPRAYS DAILY
     Route: 045
  2. RHINOCORT [Suspect]
     Active Substance: BUDESONIDE
     Indication: RHINORRHOEA
     Dosage: 2 SPRAYS DAILY
     Route: 045
  3. RHINOCORT [Suspect]
     Active Substance: BUDESONIDE
     Indication: EYE PRURITUS
     Dosage: 2 SPRAYS DAILY
     Route: 045

REACTIONS (1)
  - Insomnia [Recovered/Resolved]
